FAERS Safety Report 5912217-5 (Version None)
Quarter: 2008Q4

REPORT INFORMATION
  Report Type: 
  Country: None (occurrence: None)
  Receive Date: 20081008
  Receipt Date: 20081002
  Transmission Date: 20090506
  Serious: Yes (Hospitalization)
  Sender: FDA-Public Use
  Company Number: PHHO2008GB04895

PATIENT
  Sex: Male
  Weight: 76.9 kg

DRUGS (1)
  1. TASIGNA [Suspect]
     Indication: CHRONIC MYELOID LEUKAEMIA
     Dosage: 400 MG, BID
     Route: 048
     Dates: start: 20071112

REACTIONS (5)
  - DIZZINESS [None]
  - FLUSHING [None]
  - HEADACHE [None]
  - SYNCOPE [None]
  - VISUAL IMPAIRMENT [None]
